FAERS Safety Report 15469441 (Version 1)
Quarter: 2018Q4

REPORT INFORMATION
  Report Type: Spontaneous
  Country: GB (occurrence: GB)
  Receive Date: 20181005
  Receipt Date: 20181005
  Transmission Date: 20190205
  Serious: Yes (Other)
  Sender: FDA-Public Use
  Company Number: GB-PFIZER INC-2013232480

PATIENT
  Age: 59 Year
  Sex: Female
  Weight: 42.18 kg

DRUGS (3)
  1. FRAGMIN [Suspect]
     Active Substance: DALTEPARIN SODIUM
     Indication: TIBIA FRACTURE
     Dosage: 5000 IU, UNK
     Route: 051
     Dates: start: 20130330, end: 20130516
  2. CODEINE PHOSPHATE [Concomitant]
     Active Substance: CODEINE PHOSPHATE
     Dosage: UNK
  3. NAPROXEN. [Concomitant]
     Active Substance: NAPROXEN
     Dosage: UNK
     Dates: start: 20130415, end: 20130617

REACTIONS (4)
  - Hair growth abnormal [Unknown]
  - Hair colour changes [Unknown]
  - Alopecia [Recovering/Resolving]
  - Hair texture abnormal [Unknown]

NARRATIVE: CASE EVENT DATE: 20130330
